FAERS Safety Report 12828405 (Version 3)
Quarter: 2017Q2

REPORT INFORMATION
  Report Type: Spontaneous
  Country: US (occurrence: US)
  Receive Date: 20161007
  Receipt Date: 20170609
  Transmission Date: 20170830
  Serious: Yes (Other)
  Sender: FDA-Public Use
  Company Number: US-TEVA-698791USA

PATIENT
  Sex: Female

DRUGS (21)
  1. ATENOLOL. [Concomitant]
     Active Substance: ATENOLOL
  2. TRAMADOL. [Concomitant]
     Active Substance: TRAMADOL
  3. FUROSEMIDE. [Concomitant]
     Active Substance: FUROSEMIDE
  4. ZOLPIDEM [Concomitant]
     Active Substance: ZOLPIDEM\ZOLPIDEM TARTRATE
  5. BACLOFEN. [Concomitant]
     Active Substance: BACLOFEN
  6. XARELTO [Concomitant]
     Active Substance: RIVAROXABAN
  7. CLONAZEPAM. [Concomitant]
     Active Substance: CLONAZEPAM
  8. COPAXONE [Suspect]
     Active Substance: GLATIRAMER ACETATE
     Indication: MULTIPLE SCLEROSIS
     Dates: start: 200903
  9. ADVAIR HFA [Concomitant]
     Active Substance: FLUTICASONE PROPIONATE\SALMETEROL XINAFOATE
  10. METHYLPHENIDATE. [Concomitant]
     Active Substance: METHYLPHENIDATE
  11. LYRICA [Concomitant]
     Active Substance: PREGABALIN
  12. LISINOPRIL. [Concomitant]
     Active Substance: LISINOPRIL
  13. METOPROLOL. [Concomitant]
     Active Substance: METOPROLOL
  14. SENNA PLUS [Concomitant]
     Active Substance: DOCUSATE SODIUM\SENNOSIDES\SENNOSIDES A AND B
  15. BUMETANIDE. [Concomitant]
     Active Substance: BUMETANIDE
  16. VENLAFAXINE [Concomitant]
     Active Substance: VENLAFAXINE HYDROCHLORIDE
  17. METFORMIN [Concomitant]
     Active Substance: METFORMIN HYDROCHLORIDE
  18. MORPHINE [Concomitant]
     Active Substance: MORPHINE
  19. HYDROCODONE W/ACETAMINOPHEN [Concomitant]
     Active Substance: ACETAMINOPHEN\HYDROCODONE BITARTRATE
  20. SIMVASTATIN. [Concomitant]
     Active Substance: SIMVASTATIN
  21. TRAZODONE [Concomitant]
     Active Substance: TRAZODONE HYDROCHLORIDE

REACTIONS (2)
  - Carpal tunnel decompression [Unknown]
  - Motor dysfunction [Unknown]

NARRATIVE: CASE EVENT DATE: 2016
